FAERS Safety Report 15995625 (Version 2)
Quarter: 2019Q1

REPORT INFORMATION
  Report Type: Spontaneous
  Country: RS (occurrence: RS)
  Receive Date: 20190222
  Receipt Date: 20190308
  Transmission Date: 20190418
  Serious: Yes (Other)
  Sender: FDA-Public Use
  Company Number: RS-ELI_LILLY_AND_COMPANY-RS201902008715

PATIENT
  Age: 44 Year
  Sex: Male

DRUGS (6)
  1. ERBITUX [Suspect]
     Active Substance: CETUXIMAB
     Dosage: UNK UNK, UNKNOWN
     Route: 065
     Dates: start: 20190124
  2. ORAMORPH [Concomitant]
     Active Substance: MORPHINE SULFATE
     Indication: PRODUCT USED FOR UNKNOWN INDICATION
     Dosage: UNK
  3. ERBITUX [Suspect]
     Active Substance: CETUXIMAB
     Indication: PHARYNGEAL CANCER
     Dosage: 400 MG/M2, UNKNOWN (800 MG)
     Route: 065
     Dates: start: 20181204
  4. ERBITUX [Suspect]
     Active Substance: CETUXIMAB
     Dosage: 200 MG/M2 (400 MG), UNKNOWN
     Route: 065
     Dates: start: 20190115
  5. DUROGESIC [Concomitant]
     Active Substance: FENTANYL
     Indication: PRODUCT USED FOR UNKNOWN INDICATION
     Dosage: 12.5 MCG/HR
  6. ERBITUX [Suspect]
     Active Substance: CETUXIMAB
     Dosage: 250 MG/M2(500MG), WEEKLY (1/W)
     Route: 065
     Dates: start: 20181213, end: 20181227

REACTIONS (3)
  - Pseudomonas infection [Recovered/Resolved]
  - Dermatitis [Recovering/Resolving]
  - Rash maculo-papular [Unknown]

NARRATIVE: CASE EVENT DATE: 201901
